FAERS Safety Report 9657048 (Version 2)
Quarter: 2013Q4

REPORT INFORMATION
  Report Type: Spontaneous
  Country: IT (occurrence: IT)
  Receive Date: 20131030
  Receipt Date: 20131030
  Transmission Date: 20140711
  Serious: Yes (Other)
  Sender: FDA-Public Use
  Company Number: IT-FRI-1000049852

PATIENT
  Age: 85 Year
  Sex: Male

DRUGS (7)
  1. NEBIVOLOL [Suspect]
     Dosage: 5 MG
     Dates: start: 20120808
  2. LISINOPRIL [Suspect]
     Dosage: 20 MG
     Dates: start: 20120808
  3. MONOKET [Suspect]
     Dosage: 50 MG
     Dates: start: 20120808
  4. NORVASC [Suspect]
     Dosage: 10 MG
     Dates: start: 20120808
  5. ACIDO ACETILSALICILICO [Concomitant]
     Dosage: 10 MG
     Route: 048
  6. TOTALIP [Concomitant]
  7. LANSOX [Concomitant]

REACTIONS (5)
  - Syncope [Recovering/Resolving]
  - Bundle branch block right [Unknown]
  - Bundle branch block left [Unknown]
  - Bifascicular block [Unknown]
  - Left ventricular hypertrophy [Unknown]
